FAERS Safety Report 9147285 (Version 1)
Quarter: 2013Q1

REPORT INFORMATION
  Report Type: Spontaneous
  Country: US (occurrence: US)
  Receive Date: 20130307
  Receipt Date: 20130307
  Transmission Date: 20140127
  Serious: No
  Sender: FDA-Public Use
  Company Number: US-PFIZER INC-2013079271

PATIENT
  Age: 54 Year
  Sex: Female
  Weight: 60.32 kg

DRUGS (6)
  1. LYRICA [Suspect]
     Indication: FIBROMYALGIA
     Dosage: 150 MG, 3X/DAY
     Route: 048
  2. LYRICA [Suspect]
     Dosage: 150 MG, 1X/DAY
     Route: 048
  3. HYDROCODONE [Concomitant]
     Indication: BACK PAIN
     Dosage: ^10/325MG^, 4X/DAY
  4. LOXITANE [Concomitant]
     Indication: NERVOUS SYSTEM DISORDER
     Dosage: 1 MG, 3X/DAY
  5. ALBUTEROL [Concomitant]
     Indication: DYSPNOEA
     Dosage: UNK, 1X/DAY
  6. SOMA [Concomitant]
     Dosage: 350 MG, 3X/DAY

REACTIONS (4)
  - Breast swelling [Not Recovered/Not Resolved]
  - Breast tenderness [Not Recovered/Not Resolved]
  - Local swelling [Not Recovered/Not Resolved]
  - Intentional drug misuse [Unknown]
